FAERS Safety Report 6841613-7 (Version None)
Quarter: 2010Q3

REPORT INFORMATION
  Report Type: 
  Country: None (occurrence: None)
  Receive Date: 20100714
  Receipt Date: 20071214
  Transmission Date: 20110219
  Serious: No
  Sender: FDA-Public Use
  Company Number: US-PFIZER INC-2007055614

PATIENT
  Sex: Male
  Weight: 67.1 kg

DRUGS (4)
  1. CHANTIX [Suspect]
     Indication: SMOKING CESSATION THERAPY
     Dates: start: 20070522
  2. CLARITIN [Concomitant]
  3. VENLAFAXINE HYDROCHLORIDE [Concomitant]
  4. FLONASE [Concomitant]

REACTIONS (2)
  - DRUG SCREEN FALSE POSITIVE [None]
  - SKIN ATROPHY [None]
